FAERS Safety Report 8447601 (Version 5)
Quarter: 2012Q4

REPORT INFORMATION
  Report Type: 
  Country: IE (occurrence: IE)
  Receive Date: 20120308
  Receipt Date: 20121029
  Transmission Date: 20130627
  Serious: Yes (Hospitalization, Other)
  Sender: FDA-Public Use
  Company Number: IE-JNJFOC-20120301283

PATIENT
  Sex: Male

DRUGS (8)
  1. SIMPONI [Suspect]
     Indication: RHEUMATOID ARTHRITIS
     Route: 058
     Dates: start: 20101203
  2. DIFENAC [Concomitant]
  3. METHOTREXATE [Concomitant]
  4. FOLIC ACID [Concomitant]
  5. ISTIN [Concomitant]
  6. DELTACORTRIL [Concomitant]
  7. NEBILET [Concomitant]
  8. PANTOPRAZOLE [Concomitant]

REACTIONS (4)
  - Lung infection [Unknown]
  - Empyema [Unknown]
  - Knee arthroplasty [Unknown]
  - Rheumatoid arthritis [Unknown]
